FAERS Safety Report 19471423 (Version 1)
Quarter: 2021Q2

REPORT INFORMATION
  Report Type: Spontaneous
  Country: AR (occurrence: AR)
  Receive Date: 20210628
  Receipt Date: 20210628
  Transmission Date: 20210717
  Serious: Yes (Other)
  Sender: FDA-Public Use
  Company Number: AR-PFIZER INC-2021709241

PATIENT
  Age: 69 Year
  Sex: Female

DRUGS (1)
  1. INLYTA [Suspect]
     Active Substance: AXITINIB
     Indication: RENAL CANCER
     Dosage: 5 MG, DAILY
     Dates: start: 20200106

REACTIONS (3)
  - Gastric polyps [Unknown]
  - Abdominal pain upper [Unknown]
  - Gastritis [Unknown]

NARRATIVE: CASE EVENT DATE: 202106
